FAERS Safety Report 23897872 (Version 1)
Quarter: 2024Q2

REPORT INFORMATION
  Report Type: Spontaneous
  Country: FR (occurrence: FR)
  Receive Date: 20240524
  Receipt Date: 20240524
  Transmission Date: 20240715
  Serious: Yes (Life-Threatening, Hospitalization)
  Sender: FDA-Public Use
  Company Number: None

PATIENT
  Age: 51 Year
  Sex: Male
  Weight: 64.5 kg

DRUGS (20)
  1. PEMETREXED [Suspect]
     Active Substance: PEMETREXED
     Indication: Lung adenocarcinoma
     Dosage: 935 MILLIGRAM, TOTAL
     Route: 042
     Dates: start: 20240411, end: 20240411
  2. KEYTRUDA [Suspect]
     Active Substance: PEMBROLIZUMAB
     Indication: Lung adenocarcinoma
     Dosage: 200 MILLIGRAM, TOTAL
     Route: 042
     Dates: start: 20240313, end: 20240313
  3. KEYTRUDA [Suspect]
     Active Substance: PEMBROLIZUMAB
     Dosage: 200 MILLIGRAM, TOTAL
     Route: 042
     Dates: start: 20240222, end: 20240222
  4. NALOXEGOL [Concomitant]
     Active Substance: NALOXEGOL
     Dosage: 25 MILLIGRAM, QD, 25 MG IN THE MORNING
     Route: 048
  5. VENLAFAXINE HYDROCHLORIDE [Concomitant]
     Active Substance: VENLAFAXINE HYDROCHLORIDE
     Dosage: 225 MILLIGRAM, QD, 75 MG; 3 TEASPOONS IN THE MORNING
     Route: 048
  6. KARDEGIC [Concomitant]
     Active Substance: ASPIRIN DL-LYSINE
     Dosage: 100 MILLIGRAM, QD
     Route: 048
  7. INDAPAMIDE\PERINDOPRIL [Concomitant]
     Active Substance: INDAPAMIDE\PERINDOPRIL
     Dosage: 225 MILLIGRAM, QD, 75 MG; 3 TEASPOONS IN THE MORNING
     Route: 048
  8. CARBOPLATIN [Concomitant]
     Active Substance: CARBOPLATIN
     Indication: Lung adenocarcinoma
     Dosage: 442.25 MILLIGRAM, TOTAL
     Route: 042
     Dates: start: 20240313, end: 20240313
  9. CARBOPLATIN [Concomitant]
     Active Substance: CARBOPLATIN
     Dosage: 374.25 MILLIGRAM, TOTAL
     Route: 042
     Dates: start: 20240201, end: 20240201
  10. CARBOPLATIN [Concomitant]
     Active Substance: CARBOPLATIN
     Dosage: 417.35 MILLIGRAM, TOTAL
     Route: 042
     Dates: start: 20240222, end: 20240222
  11. SODIUM [Concomitant]
     Active Substance: SODIUM
     Dosage: 1000 MILLIGRAM, QD, 500 MG 2 TABLETS MORNING AND EVENING
     Route: 048
  12. ALPRAZOLAM [Concomitant]
     Active Substance: ALPRAZOLAM
     Dosage: 1 MILLIGRAM, QD, 0.5 MG MORNING AND  EVENING
     Route: 048
  13. ONDANSETRON [Concomitant]
     Active Substance: ONDANSETRON
     Dosage: 16 MILLIGRAM, QD, 8 MG MORNING AND  EVENING
     Route: 048
  14. ATORVASTATIN [Concomitant]
     Active Substance: ATORVASTATIN
     Dosage: 80 MILLIGRAM, QD, 40 MG 2 TABLETS IN THE  EVENING
     Route: 048
  15. SKENAN [Concomitant]
     Active Substance: MORPHINE SULFATE
     Dosage: 40 MILLIGRAM, QD, 20 MG MORNING AND EVENING
     Route: 048
  16. NICOPATCH [Concomitant]
     Active Substance: NICOTINE
     Dosage: 1 DOSAGE FORM, QD, 21MG/24H, TRANSDERMAL  PATCH OF 52.5 MG/30  CENTIMETER SQUARE
     Route: 062
  17. MORPHINE SULFATE [Concomitant]
     Active Substance: MORPHINE SULFATE
     Dosage: 1 DOSAGE FORM, QD, IF NECESSARY EVERY 4  HOURS
     Route: 048
  18. PACLITAXEL [Concomitant]
     Active Substance: PACLITAXEL
     Indication: Lung adenocarcinoma
     Dosage: 307.2 MILLIGRAM, TOTAL
     Route: 042
     Dates: start: 20240313, end: 20240313
  19. PACLITAXEL [Concomitant]
     Active Substance: PACLITAXEL
     Dosage: 382 MILLIGRAM, TOTAL
     Route: 042
     Dates: start: 20240222, end: 20240222
  20. VERAPAMIL HYDROCHLORIDE [Concomitant]
     Active Substance: VERAPAMIL HYDROCHLORIDE
     Dosage: 120 MILLIGRAM, QD, 120 MG IN THE  MORNING
     Route: 048

REACTIONS (2)
  - Haemophagocytic lymphohistiocytosis [Recovering/Resolving]
  - Rash [Recovering/Resolving]

NARRATIVE: CASE EVENT DATE: 20240423
